FAERS Safety Report 14962751 (Version 1)
Quarter: 2018Q2

REPORT INFORMATION
  Report Type: Spontaneous
  Country: US (occurrence: US)
  Receive Date: 20180601
  Receipt Date: 20180601
  Transmission Date: 20180711
  Serious: Yes (Other)
  Sender: FDA-Public Use
  Company Number: PHEH2018US019925

PATIENT
  Sex: Female

DRUGS (1)
  1. GILENYA [Suspect]
     Active Substance: FINGOLIMOD HYDROCHLORIDE
     Indication: PRODUCT USED FOR UNKNOWN INDICATION
     Route: 065

REACTIONS (9)
  - Butterfly rash [Unknown]
  - Aneurysm [Unknown]
  - Normal newborn [Unknown]
  - Neoplasm malignant [Unknown]
  - Renal injury [Unknown]
  - Seizure [Unknown]
  - Maternal exposure timing unspecified [Unknown]
  - Multiple sclerosis relapse [Unknown]
  - Systemic lupus erythematosus [Unknown]
